FAERS Safety Report 17957366 (Version 2)
Quarter: 2020Q3

REPORT INFORMATION
  Report Type: Spontaneous
  Country: US (occurrence: US)
  Receive Date: 20200629
  Receipt Date: 20200708
  Transmission Date: 20201103
  Serious: Yes (Other)
  Sender: FDA-Public Use
  Company Number: US-PFIZER INC-2020247158

PATIENT
  Age: 65 Year
  Sex: Female
  Weight: 49.9 kg

DRUGS (2)
  1. XELJANZ [Suspect]
     Active Substance: TOFACITINIB CITRATE
     Dosage: 5 MG, 2X/DAY
  2. XELJANZ [Suspect]
     Active Substance: TOFACITINIB CITRATE
     Dosage: 5 MG, 1X/DAY (ONLY USUALLY TOOK IT ONCE A DAY)

REACTIONS (13)
  - Clostridium difficile colitis [Unknown]
  - Gastritis bacterial [Unknown]
  - Fatigue [Unknown]
  - Body height decreased [Unknown]
  - Hand deformity [Not Recovered/Not Resolved]
  - Malaise [Unknown]
  - Foot deformity [Not Recovered/Not Resolved]
  - Finger deformity [Unknown]
  - Drug ineffective [Unknown]
  - Stab wound [Unknown]
  - Arthritis [Unknown]
  - Intentional product misuse [Unknown]
  - Musculoskeletal stiffness [Unknown]
